FAERS Safety Report 25981379 (Version 1)
Quarter: 2025Q4

REPORT INFORMATION
  Report Type: Spontaneous
  Country: EU (occurrence: EU)
  Receive Date: 20251030
  Receipt Date: 20251030
  Transmission Date: 20260118
  Serious: Yes (Other)
  Sender: MERCK SHARP & DOHME LLC
  Company Number: None

PATIENT
  Age: 64 Year
  Sex: Male

DRUGS (14)
  1. KEYTRUDA [Suspect]
     Active Substance: PEMBROLIZUMAB
     Indication: Bronchial carcinoma
     Route: 042
     Dates: start: 20240808, end: 20250808
  2. ZOPICLONE [Concomitant]
     Active Substance: ZOPICLONE
  3. FOLIC ACID [Concomitant]
     Active Substance: FOLIC ACID
  4. KARDEGIC [Concomitant]
     Active Substance: ASPIRIN DL-LYSINE
  5. TRIXEO AEROSPHERE 5 micrograms/7.2 micrograms/160 micrograms, suspe... [Concomitant]
  6. SOLUPRED 20 mg, orodispersible tablet [Concomitant]
  7. SKENAN L.P. 60 mg, microgranules with prolonged release in capsule [Concomitant]
  8. DIFFU-K, capsule [Concomitant]
  9. LANSOPRAZOLE [Concomitant]
     Active Substance: LANSOPRAZOLE
  10. IPRATROPIUM BROMIDE [Concomitant]
     Active Substance: IPRATROPIUM BROMIDE
  11. PHOSPHONEUROS, oral solution in drops [Concomitant]
  12. MORPHINE SULFATE [Concomitant]
     Active Substance: MORPHINE SULFATE
  13. ALFUZOSIN HYDROCHLORIDE [Concomitant]
     Active Substance: ALFUZOSIN HYDROCHLORIDE
  14. ALBUTEROL [Concomitant]
     Active Substance: ALBUTEROL

REACTIONS (2)
  - Rheumatoid arthritis [Recovering/Resolving]
  - Condition aggravated [Recovering/Resolving]

NARRATIVE: CASE EVENT DATE: 20250805
